FAERS Safety Report 12182367 (Version 2)
Quarter: 2016Q3

REPORT INFORMATION
  Report Type: Spontaneous
  Country: SE (occurrence: SE)
  Receive Date: 20160316
  Receipt Date: 20160826
  Transmission Date: 20161109
  Serious: Yes (Hospitalization)
  Sender: FDA-Public Use
  Company Number: SE-ROCHE-1724693

PATIENT
  Age: 80 Year
  Sex: Female

DRUGS (13)
  1. SODIUM BICARBONATE. [Concomitant]
     Active Substance: SODIUM BICARBONATE
  2. NOVONORM [Concomitant]
     Active Substance: REPAGLINIDE
  3. LUCENTIS [Suspect]
     Active Substance: RANIBIZUMAB
     Route: 050
     Dates: start: 20151013
  4. BISOPROLOL SANDOZ [Concomitant]
     Active Substance: BISOPROLOL
  5. ALVEDON [Concomitant]
     Active Substance: ACETAMINOPHEN
  6. OMEPRAZOL [Concomitant]
     Active Substance: OMEPRAZOLE
  7. LATANOPROST. [Concomitant]
     Active Substance: LATANOPROST
  8. FUROSEMIDE. [Concomitant]
     Active Substance: FUROSEMIDE
  9. SPIRONOLACTONE. [Concomitant]
     Active Substance: SPIRONOLACTONE
  10. RENVELA [Concomitant]
     Active Substance: SEVELAMER CARBONATE
  11. LUCENTIS [Suspect]
     Active Substance: RANIBIZUMAB
     Indication: AGE-RELATED MACULAR DEGENERATION
     Route: 050
     Dates: start: 20140703
  12. ETALPHA [Concomitant]
     Active Substance: ALFACALCIDOL
  13. ZOPIKLON [Concomitant]
     Active Substance: ZOPICLONE

REACTIONS (1)
  - Myocardial infarction [Recovered/Resolved]

NARRATIVE: CASE EVENT DATE: 20160212
